FAERS Safety Report 7496825-9 (Version None)
Quarter: 2011Q2

REPORT INFORMATION
  Report Type: 
  Country: None (occurrence: None)
  Receive Date: 20110523
  Receipt Date: 20110516
  Transmission Date: 20111010
  Serious: Yes (Other)
  Sender: FDA-Public Use
  Company Number: DE-ROCHE-777868

PATIENT
  Sex: Female

DRUGS (1)
  1. BONIVA [Suspect]
     Route: 042

REACTIONS (4)
  - SENSITIVITY OF TEETH [None]
  - HEADACHE [None]
  - ENAMEL ANOMALY [None]
  - ARTHRALGIA [None]
